FAERS Safety Report 4650993-2 (Version None)
Quarter: 2005Q2

REPORT INFORMATION
  Report Type: 
  Country: None (occurrence: None)
  Receive Date: 20050429
  Receipt Date: 20050422
  Transmission Date: 20051028
  Serious: Yes (Other)
  Sender: FDA-Public Use
  Company Number: 212863

PATIENT
  Sex: Female

DRUGS (4)
  1. NUTROPIN AQ [Suspect]
     Indication: TURNER'S SYNDROME
     Dosage: SUBCUTANEOUS
     Route: 058
  2. NEURONTIN [Concomitant]
  3. KEPPRA [Concomitant]
  4. SYNTHROID [Concomitant]

REACTIONS (4)
  - BLOOD GONADOTROPHIN INCREASED [None]
  - CONVULSION [None]
  - HYPERTROPHY BREAST [None]
  - HYPOTHYROIDISM [None]
